FAERS Safety Report 10897438 (Version 2)
Quarter: 2015Q1

REPORT INFORMATION
  Report Type: Other
  Country: IT (occurrence: IT)
  Receive Date: 20150309
  Receipt Date: 20150319
  Transmission Date: 20150721
  Serious: Yes (Hospitalization)
  Sender: FDA-Public Use
  Company Number: IT-MYLANLABS-2015M1006344

PATIENT

DRUGS (2)
  1. DAPAROX                            /00830803/ [Suspect]
     Active Substance: PAROXETINE MESYLATE
     Indication: PRODUCT USED FOR UNKNOWN INDICATION
     Dosage: 18.5 ML, TOTAL
     Route: 048
     Dates: start: 20150101, end: 20150101
  2. ALPRAZOLAM. [Suspect]
     Active Substance: ALPRAZOLAM
     Indication: PRODUCT USED FOR UNKNOWN INDICATION
     Dosage: 75 MG, TOTAL
     Route: 048
     Dates: start: 20150101, end: 20150101

REACTIONS (4)
  - Intentional self-injury [Unknown]
  - Drug abuse [Unknown]
  - Overdose [Unknown]
  - Sopor [Unknown]

NARRATIVE: CASE EVENT DATE: 20150101
